FAERS Safety Report 8367805-6 (Version None)
Quarter: 2012Q2

REPORT INFORMATION
  Report Type: 
  Country: None (occurrence: None)
  Receive Date: 20120517
  Receipt Date: 20120515
  Transmission Date: 20120825
  Serious: Yes (Hospitalization)
  Sender: FDA-Public Use
  Company Number: US-ROCHE-1022306

PATIENT
  Sex: Female
  Weight: 73.6 kg

DRUGS (11)
  1. FUROSEMIDE [Concomitant]
     Route: 048
     Dates: start: 20100101
  2. AMLODIPINE [Concomitant]
     Indication: HYPERTENSION
     Route: 048
     Dates: start: 20100101
  3. CLONIDINE [Concomitant]
     Indication: HYPERTENSION
     Route: 048
     Dates: start: 20110401
  4. ASPIRIN [Concomitant]
     Indication: ANTICOAGULANT THERAPY
     Route: 048
     Dates: start: 20100101
  5. SIMVASTATIN [Concomitant]
     Indication: BLOOD CHOLESTEROL
     Dosage: QHS
     Route: 048
  6. RANIBIZUMAB [Suspect]
     Indication: DIABETIC RETINAL OEDEMA
     Dosage: ONCE PER MOS
     Route: 050
     Dates: start: 20110623
  7. CRESTOR [Concomitant]
     Indication: BLOOD CHOLESTEROL
     Dates: start: 20100101
  8. DOXAZOSIN MESYLATE [Concomitant]
     Route: 048
     Dates: start: 20100101
  9. HUMALOG [Concomitant]
     Indication: DIABETES MELLITUS
     Route: 058
  10. SODIUM BICARBONATE [Concomitant]
     Indication: GASTROOESOPHAGEAL REFLUX DISEASE
     Route: 048
     Dates: start: 20100101
  11. LANTUS [Concomitant]
     Indication: DIABETES MELLITUS
     Dosage: 10 UNITS AT BED
     Route: 058
     Dates: start: 20100101

REACTIONS (1)
  - PNEUMONIA [None]
